FAERS Safety Report 10988996 (Version 1)
Quarter: 2015Q2

REPORT INFORMATION
  Report Type: Report from Study
  Country: GB (occurrence: GB)
  Receive Date: 20150405
  Receipt Date: 20150405
  Transmission Date: 20150821
  Serious: Yes (Hospitalization)
  Sender: FDA-Public Use
  Company Number: GB-BRISTOL-MYERS SQUIBB COMPANY-19499748

PATIENT
  Age: 60 Year
  Sex: Female
  Weight: 80 kg

DRUGS (16)
  1. NIVOLUMAB [Suspect]
     Active Substance: NIVOLUMAB
     Indication: METASTATIC MALIGNANT MELANOMA
     Dosage: DOSE:3MG/KG
     Route: 042
     Dates: start: 20130805
  2. BECLOMETHASONE [Concomitant]
     Active Substance: BECLOMETHASONE
     Indication: PREMEDICATION
  3. LACTULOSE. [Concomitant]
     Active Substance: LACTULOSE
  4. LANSOPRAZOLE. [Concomitant]
     Active Substance: LANSOPRAZOLE
  5. TRAMADOL [Concomitant]
     Active Substance: TRAMADOL
     Indication: PREMEDICATION
  6. ZOPICLONE [Concomitant]
     Active Substance: ZOPICLONE
  7. PREDNISOLONE. [Concomitant]
     Active Substance: PREDNISOLONE
  8. TRIMETHOPRIM. [Concomitant]
     Active Substance: TRIMETHOPRIM
  9. DOCUSATE SODIUM. [Concomitant]
     Active Substance: DOCUSATE SODIUM
     Indication: PREMEDICATION
  10. SALBUTAMOL [Concomitant]
     Active Substance: ALBUTEROL
     Indication: PREMEDICATION
  11. SODIUM HYDROGEN CARBONATE [Concomitant]
     Active Substance: SODIUM BICARBONATE
  12. IPILIMUMAB [Suspect]
     Active Substance: IPILIMUMAB
     Indication: METASTATIC MALIGNANT MELANOMA
     Route: 042
  13. MOMETASONE [Concomitant]
     Active Substance: MOMETASONE
     Indication: PREMEDICATION
  14. SYMBICORT [Concomitant]
     Active Substance: BUDESONIDE\FORMOTEROL FUMARATE DIHYDRATE
  15. CYCLIZINE [Concomitant]
     Active Substance: CYCLIZINE
     Indication: PREMEDICATION
  16. TINZAPARIN [Concomitant]
     Active Substance: TINZAPARIN

REACTIONS (1)
  - Transaminases increased [Recovered/Resolved]

NARRATIVE: CASE EVENT DATE: 20130929
